FAERS Safety Report 24161261 (Version 1)
Quarter: 2024Q3

REPORT INFORMATION
  Report Type: Spontaneous
  Country: US (occurrence: US)
  Receive Date: 20240801
  Receipt Date: 20240801
  Transmission Date: 20241016
  Serious: Yes (Hospitalization, Other)
  Sender: RANBAXY
  Company Number: US-SUN PHARMACEUTICAL INDUSTRIES LTD-2024R1-458821

PATIENT
  Age: 42 Year
  Sex: Female

DRUGS (11)
  1. DULOXETINE [Suspect]
     Active Substance: DULOXETINE
     Indication: Product used for unknown indication
     Dosage: 60 MILLIGRAM, BID
     Route: 065
  2. DULOXETINE [Suspect]
     Active Substance: DULOXETINE
     Dosage: 30 MILLIGRAM, BID
     Route: 065
  3. METOCLOPRAMIDE [Suspect]
     Active Substance: METOCLOPRAMIDE
     Indication: Nausea
     Dosage: 10 MILLIGRAM, TID
     Route: 065
  4. METOCLOPRAMIDE [Suspect]
     Active Substance: METOCLOPRAMIDE
     Indication: Vomiting
  5. NORTRIPTYLINE [Suspect]
     Active Substance: NORTRIPTYLINE
     Indication: Product used for unknown indication
     Dosage: 150 MILLIGRAM, DAILY
     Route: 065
  6. NORTRIPTYLINE [Suspect]
     Active Substance: NORTRIPTYLINE
     Dosage: 75 MILLIGRAM, DAILY
     Route: 065
  7. NORTRIPTYLINE [Suspect]
     Active Substance: NORTRIPTYLINE
     Dosage: 50 MILLIGRAM, DAILY
     Route: 065
  8. BUSPIRONE [Suspect]
     Active Substance: BUSPIRONE HYDROCHLORIDE
     Indication: Anxiety
     Dosage: 5 MILLIGRAM, TID
     Route: 065
  9. BUSPIRONE [Suspect]
     Active Substance: BUSPIRONE HYDROCHLORIDE
     Indication: Agitation
     Dosage: 5 MILLIGRAM (SINGLE DOSE)
     Route: 065
  10. LORAZEPAM [Concomitant]
     Active Substance: LORAZEPAM
     Indication: Anxiety
     Route: 060
  11. LORAZEPAM [Concomitant]
     Active Substance: LORAZEPAM
     Indication: Agitation

REACTIONS (4)
  - Serotonin syndrome [Unknown]
  - Dystonia [Recovered/Resolved]
  - Acute kidney injury [Unknown]
  - Multiple drug therapy [Unknown]
